FAERS Safety Report 5142438-3 (Version None)
Quarter: 2006Q4

REPORT INFORMATION
  Report Type: 
  Country: None (occurrence: None)
  Receive Date: 20061030
  Receipt Date: 20061030
  Transmission Date: 20070319
  Serious: Yes (Hospitalization)
  Sender: FDA-Public Use
  Company Number: None

PATIENT
  Sex: Male

DRUGS (1)
  1. ALDESLEUKIN [Suspect]
     Indication: CAROTID ARTERY DISEASE
     Dosage: 78.6 MIU Q 8 HOURS IV X 14 DOSES
     Route: 042
     Dates: start: 20061003

REACTIONS (2)
  - DEHYDRATION [None]
  - HYPOGLYCAEMIA [None]
